FAERS Safety Report 9346354 (Version 1)
Quarter: 2013Q2

REPORT INFORMATION
  Report Type: Spontaneous
  Country: US (occurrence: US)
  Receive Date: 20130613
  Receipt Date: 20130613
  Transmission Date: 20140414
  Serious: No
  Sender: FDA-Public Use
  Company Number: US-009507513-1306USA005172

PATIENT
  Sex: Male

DRUGS (1)
  1. JANUMET XR [Suspect]
     Route: 048

REACTIONS (1)
  - Vomiting [Recovering/Resolving]
